FAERS Safety Report 16629777 (Version 1)
Quarter: 2019Q3

REPORT INFORMATION
  Report Type: Spontaneous
  Country: GR (occurrence: GR)
  Receive Date: 20190725
  Receipt Date: 20190725
  Transmission Date: 20191004
  Serious: Yes (Hospitalization)
  Sender: FDA-Public Use
  Company Number: GR-ROCHE-2363343

PATIENT
  Age: 77 Year
  Sex: Male
  Weight: 84 kg

DRUGS (5)
  1. XELODA [Suspect]
     Active Substance: CAPECITABINE
     Indication: RECTOSIGMOID CANCER METASTATIC
     Route: 048
  2. ZINADOL [Concomitant]
     Active Substance: CEFUROXIME AXETIL
     Indication: INFECTION
     Route: 048
  3. LEGOFER [Concomitant]
     Active Substance: FERROUS SUCCINATE
     Indication: ANAEMIA
     Route: 048
  4. ZINADOL [Concomitant]
     Active Substance: CEFUROXIME AXETIL
     Indication: PYREXIA
  5. ARANESP [Concomitant]
     Active Substance: DARBEPOETIN ALFA
     Indication: ANAEMIA OF MALIGNANT DISEASE
     Route: 058

REACTIONS (1)
  - Ileus paralytic [Unknown]
